FAERS Safety Report 7341717-9 (Version None)
Quarter: 2011Q1

REPORT INFORMATION
  Report Type: 
  Country: None (occurrence: None)
  Receive Date: 20110309
  Receipt Date: 20110302
  Transmission Date: 20110831
  Serious: Yes (Life-Threatening)
  Sender: FDA-Public Use
  Company Number: JP-BAYER-201015170BYL

PATIENT
  Sex: Female
  Weight: 63 kg

DRUGS (38)
  1. GLYCERIN [Concomitant]
     Indication: PROPHYLAXIS
     Route: 062
  2. KN [Concomitant]
     Dosage: 1000 ML (DAILY DOSE), , IV DRIP
     Route: 041
     Dates: start: 20101014, end: 20101020
  3. TAKEPRON [Concomitant]
     Dosage: 30 MG (DAILY DOSE), , IV DRIP
     Route: 041
     Dates: start: 20101016, end: 20101020
  4. SUMIFERON [Concomitant]
     Route: 065
     Dates: start: 20080407, end: 20100826
  5. TAKEPRON [Concomitant]
     Route: 048
  6. AMARYL [Concomitant]
     Route: 048
  7. HIRUDOID [Concomitant]
     Route: 061
  8. SODIUM CHLORIDE [Concomitant]
     Dosage: 10 ML (DAILY DOSE), , IV DRIP
     Route: 041
     Dates: start: 20101018, end: 20101020
  9. NEUART [Concomitant]
     Dosage: 1500 IU (DAILY DOSE), , IV DRIP
     Route: 041
     Dates: start: 20101016, end: 20101020
  10. HIRUDOID [Concomitant]
     Route: 061
  11. FOY [Concomitant]
     Dosage: 1000 MG (DAILY DOSE), , IV DRIP
     Route: 041
     Dates: start: 20101017, end: 20101020
  12. SULPERAZON [Concomitant]
     Dosage: MORNING, EVENING
     Route: 041
     Dates: start: 20101015, end: 20101020
  13. NEXAVAR [Suspect]
     Indication: RENAL CELL CARCINOMA
     Route: 048
     Dates: start: 20100913
  14. HIRUDOID [Concomitant]
     Route: 061
  15. KN [Concomitant]
     Dosage: 500 ML (DAILY DOSE), , IV DRIP
     Route: 041
     Dates: start: 20101013, end: 20101013
  16. SULPERAZON [Concomitant]
     Dosage: MORNING, EVENING
     Route: 041
     Dates: start: 20101015, end: 20101020
  17. KN SOL. 3B [Concomitant]
     Dosage: 1000 ML (DAILY DOSE), , IV DRIP
     Route: 041
     Dates: start: 20101014, end: 20101020
  18. LYO-DIAMIN [Concomitant]
     Dosage: 10 ML (DAILY DOSE), , IV DRIP
     Route: 041
     Dates: start: 20101019, end: 20101020
  19. NEXAVAR [Suspect]
     Route: 048
     Dates: start: 20101008, end: 20101012
  20. SUMIFERON [Concomitant]
     Route: 065
  21. SEISHOKU [Concomitant]
     Dosage: MORNING, EVENING
     Route: 041
     Dates: start: 20101015, end: 20101015
  22. SEISHOKU [Concomitant]
     Dosage: 250 ML (DAILY DOSE), , IV DRIP
     Route: 041
     Dates: start: 20101016, end: 20101020
  23. FOY [Concomitant]
     Dosage: 1100 MG (DAILY DOSE), , IV DRIP
     Route: 041
     Dates: start: 20101016, end: 20101016
  24. SEISHOKU [Concomitant]
     Dosage: EVENING
     Route: 041
     Dates: start: 20101014, end: 20101014
  25. KN SOL. 3B [Concomitant]
     Dosage: 500 ML (DAILY DOSE), , IV DRIP
     Route: 041
     Dates: start: 20101013, end: 20101013
  26. SEISHOKU [Concomitant]
     Dosage: MORNING, EVENING
     Route: 041
     Dates: start: 20101015, end: 20101015
  27. EURODIN [Concomitant]
     Route: 048
  28. SOLYUGEN G [Concomitant]
     Dosage: 500 ML (DAILY DOSE), , IV DRIP
     Route: 041
     Dates: start: 20101013, end: 20101020
  29. SUMIFERON [Concomitant]
     Route: 065
     Dates: start: 20080407, end: 20100826
  30. FOY [Concomitant]
     Dosage: 1100 MG (DAILY DOSE), , IV DRIP
     Route: 041
     Dates: start: 20101016, end: 20101016
  31. FOY [Concomitant]
     Dosage: 1000 MG (DAILY DOSE), , IV DRIP
     Route: 041
     Dates: start: 20101015, end: 20101015
  32. VIT B1,IN COMBINATION WITH VITAMIN B6 AND B12 [Concomitant]
     Dosage: 10 ML (DAILY DOSE), , IV DRIP
     Route: 041
     Dates: start: 20101019, end: 20101020
  33. GLUCOSE [Concomitant]
     Dosage: 1000 ML (DAILY DOSE), , IV DRIP
     Route: 041
     Dates: start: 20101015, end: 20101020
  34. SOLYUGEN G TEISAN [Concomitant]
     Dosage: 500 ML (DAILY DOSE), , IV DRIP
     Route: 041
     Dates: start: 20101013, end: 20101020
  35. FOY [Concomitant]
     Dosage: 1000 MG (DAILY DOSE), , IV DRIP
     Route: 041
     Dates: start: 20101017, end: 20101020
  36. SULPERAZON [Concomitant]
     Dosage: EVENING
     Route: 041
     Dates: start: 20101014, end: 20101014
  37. MINOFIT [Concomitant]
     Dosage: 80 ML (DAILY DOSE), , INTRAVENOUS
     Route: 042
     Dates: start: 20101015, end: 20101020
  38. SEISHOKU [Concomitant]
     Dosage: 250 ML (DAILY DOSE), , IV DRIP
     Route: 041
     Dates: start: 20101016, end: 20101020

REACTIONS (4)
  - ALOPECIA [None]
  - LIVER DISORDER [None]
  - DISSEMINATED INTRAVASCULAR COAGULATION [None]
  - RASH [None]
